FAERS Safety Report 7354621-7 (Version None)
Quarter: 2011Q1

REPORT INFORMATION
  Report Type: 
  Country: None (occurrence: None)
  Receive Date: 20110316
  Receipt Date: 20110310
  Transmission Date: 20110831
  Serious: No
  Sender: FDA-Public Use
  Company Number: US-PFIZER INC-2011053626

PATIENT
  Sex: Female
  Weight: 63.492 kg

DRUGS (3)
  1. XALATAN [Suspect]
     Indication: GLAUCOMA
     Dosage: UNK
     Dates: end: 20110301
  2. PLAVIX [Concomitant]
     Dosage: UNK
     Route: 048
  3. BRIMONIDINE TARTRATE [Concomitant]
     Indication: GLAUCOMA
     Dosage: UNK

REACTIONS (1)
  - OCULAR HYPERAEMIA [None]
